FAERS Safety Report 18555522 (Version 1)
Quarter: 2020Q4

REPORT INFORMATION
  Report Type: Spontaneous
  Country: US (occurrence: US)
  Receive Date: 20201127
  Receipt Date: 20201127
  Transmission Date: 20210114
  Serious: No
  Sender: FDA-Public Use
  Company Number: US-NOVOPROD-716333

PATIENT
  Age: 67 Year
  Sex: Male

DRUGS (2)
  1. NOVOLIN N [Suspect]
     Active Substance: INSULIN HUMAN
     Dosage: DOSE INCREASED
     Route: 058
  2. NOVOLIN N [Suspect]
     Active Substance: INSULIN HUMAN
     Indication: PRODUCT USED FOR UNKNOWN INDICATION
     Dosage: 25 IU (EVERY 12 HOURS)
     Route: 058
     Dates: start: 201909, end: 20200327

REACTIONS (6)
  - Peripheral swelling [Recovering/Resolving]
  - Neuralgia [Recovering/Resolving]
  - Neuralgia [Recovered/Resolved]
  - Blood glucose increased [Not Recovered/Not Resolved]
  - Abdominal distension [Recovering/Resolving]
  - Disorganised speech [Unknown]

NARRATIVE: CASE EVENT DATE: 202003
